FAERS Safety Report 6129672-0 (Version None)
Quarter: 2009Q1

REPORT INFORMATION
  Report Type: 
  Country: None (occurrence: None)
  Receive Date: 20090323
  Receipt Date: 20090323
  Transmission Date: 20090719
  Serious: Yes (Other)
  Sender: FDA-Public Use
  Company Number: None

PATIENT
  Age: 36 Year
  Sex: Female
  Weight: 70 kg

DRUGS (16)
  1. BANZEL [Suspect]
     Indication: CONVULSION
     Dosage: 200MG DAILY ORAL
     Route: 048
     Dates: start: 20090302
  2. LAMICTAL [Concomitant]
  3. TOPAMAX [Concomitant]
  4. PHENOBARBITAL [Concomitant]
  5. DEPAKOTE [Concomitant]
  6. FORTICAL [Concomitant]
  7. CALCIUM 500 W. D [Concomitant]
  8. THERA M PLUS VITAMIN [Concomitant]
  9. PRILOSEC [Concomitant]
  10. BISACODYL/ DOCUSATE [Concomitant]
  11. AMOXICILLIN [Concomitant]
  12. FLORANEX [Concomitant]
  13. ALBUTEROL [Concomitant]
  14. ROBITUSSIN DM [Concomitant]
  15. POLYETHYLENE GLYCOL [Concomitant]
  16. TYLENOL [Concomitant]

REACTIONS (1)
  - RASH ERYTHEMATOUS [None]
